FAERS Safety Report 14618968 (Version 1)
Quarter: 2018Q1

REPORT INFORMATION
  Report Type: Spontaneous
  Country: RU (occurrence: RU)
  Receive Date: 20180309
  Receipt Date: 20180309
  Transmission Date: 20180509
  Serious: Yes (Other)
  Sender: FDA-Public Use
  Company Number: RU-ASTRAZENECA-2018SE28943

PATIENT
  Age: 76 Year
  Sex: Female
  Weight: 110 kg

DRUGS (2)
  1. FORXIGA [Suspect]
     Active Substance: DAPAGLIFLOZIN
     Indication: TYPE 2 DIABETES MELLITUS
     Route: 048
     Dates: start: 201608
  2. VITAMINS NOS [Concomitant]
     Active Substance: VITAMINS
     Indication: ILL-DEFINED DISORDER

REACTIONS (3)
  - Hip fracture [Recovering/Resolving]
  - Product use issue [Unknown]
  - Off label use [Unknown]
